FAERS Safety Report 8055790-6 (Version None)
Quarter: 2011Q4

REPORT INFORMATION
  Report Type: 
  Country: None (occurrence: None)
  Receive Date: 20111219
  Receipt Date: 20110607
  Transmission Date: 20120403
  Serious: Yes (Hospitalization)
  Sender: FDA-Public Use
  Company Number: DAV-AE-ALP-11-006

PATIENT
  Sex: Female

DRUGS (5)
  1. DIOVAN [Concomitant]
  2. ALPRAZOLAM [Suspect]
     Indication: ANXIETY
     Dosage: 0.5MG/3XS DAY
  3. DILTIAZEM HCL [Concomitant]
  4. CRESTOR [Concomitant]
  5. VITAMIN D [Concomitant]

REACTIONS (2)
  - DRUG INEFFECTIVE [None]
  - MYOCARDIAL INFARCTION [None]
